FAERS Safety Report 5530205-8 (Version None)
Quarter: 2007Q4

REPORT INFORMATION
  Report Type: 
  Country: None (occurrence: None)
  Receive Date: 20071119
  Receipt Date: 20071009
  Transmission Date: 20080405
  Serious: No
  Sender: FDA-Public Use
  Company Number: TPA2007A02075

PATIENT
  Age: 28 Year
  Sex: Male

DRUGS (2)
  1. ROZEREM [Suspect]
     Indication: SLEEP DISORDER
     Dosage: PER ORAL
     Route: 048
  2. AMBIEN [Concomitant]

REACTIONS (2)
  - DRUG INEFFECTIVE [None]
  - MIDDLE INSOMNIA [None]
